FAERS Safety Report 21178399 (Version 1)
Quarter: 2022Q3

REPORT INFORMATION
  Report Type: Spontaneous
  Country: US (occurrence: US)
  Receive Date: 20220805
  Receipt Date: 20220805
  Transmission Date: 20221027
  Serious: No
  Sender: FDA-Public Use
  Company Number: US-BRISTOL-MYERS SQUIBB COMPANY-2022-076454

PATIENT
  Age: 52 Year
  Sex: Female

DRUGS (1)
  1. REVLIMID [Suspect]
     Active Substance: LENALIDOMIDE
     Indication: Plasma cell myeloma
     Dosage: FREQ: TAKE 1 CAPSULE BY MOUTH EVERYDAY FOR 21 DAYS OF A 28 DAY CYCLE
     Route: 048
     Dates: start: 20220706

REACTIONS (5)
  - Lactose intolerance [Unknown]
  - Alanine aminotransferase increased [Unknown]
  - Dizziness [Unknown]
  - White blood cell count decreased [Unknown]
  - Malaise [Unknown]
